FAERS Safety Report 6721380-8 (Version None)
Quarter: 2010Q2

REPORT INFORMATION
  Report Type: 
  Country: None (occurrence: None)
  Receive Date: 20100512
  Receipt Date: 20100506
  Transmission Date: 20101027
  Serious: Yes (Other)
  Sender: FDA-Public Use
  Company Number: US-ASTRAZENECA-2010SE20660

PATIENT
  Age: 74 Year
  Sex: Male
  Weight: 71.7 kg

DRUGS (5)
  1. CRESTOR [Suspect]
     Route: 048
  2. NEXIUM [Concomitant]
     Indication: GASTRIC DISORDER
  3. UROXATROL [Concomitant]
     Indication: PROSTATIC DISORDER
  4. VIT D [Concomitant]
  5. AMBIEN [Concomitant]
     Indication: SLEEP DISORDER

REACTIONS (2)
  - GLYCOSYLATED HAEMOGLOBIN INCREASED [None]
  - OPTIC NEUROPATHY [None]
